FAERS Safety Report 20850490 (Version 2)
Quarter: 2022Q2

REPORT INFORMATION
  Report Type: Spontaneous
  Country: GB (occurrence: GB)
  Receive Date: 20220519
  Receipt Date: 20220525
  Transmission Date: 20220720
  Serious: Yes (Hospitalization, Other)
  Sender: FDA-Public Use
  Company Number: GB-PFIZER INC-202200696337

PATIENT
  Age: 5 Decade
  Sex: Female

DRUGS (1)
  1. ZOLEDRONIC ACID [Suspect]
     Active Substance: ZOLEDRONIC ACID
     Indication: Hypercalcaemia
     Dosage: 4 MG (4 MG/100 ML INTRAVENOUSLY OVER 15 MIN)
     Route: 042

REACTIONS (3)
  - Hypocalcaemia [Recovered/Resolved]
  - Paraesthesia oral [Recovered/Resolved]
  - Tetany [Recovered/Resolved]
